FAERS Safety Report 7715448-7 (Version None)
Quarter: 2011Q3

REPORT INFORMATION
  Report Type: 
  Country: None (occurrence: None)
  Receive Date: 20110810
  Receipt Date: 20110601
  Transmission Date: 20111222
  Serious: Yes (Other)
  Sender: FDA-Public Use
  Company Number: 1000021277

PATIENT
  Age: 51 Year
  Sex: Female

DRUGS (9)
  1. MOTRIN [Concomitant]
  2. CYMBALTA (DULOXETINE HYDROCHLORIDE) (TABLETS) (DULOXETINE HYDROCHLORID [Concomitant]
  3. SAVELLA [Suspect]
     Indication: FIBROMYALGIA
     Dosage: 50 MG BID (50 MG, 2 IN 1 D), ORAL 25 MG BID (25 MG, 2 IN 1 D), ORAL
     Route: 048
     Dates: end: 20110528
  4. SAVELLA [Suspect]
     Indication: FIBROMYALGIA
     Dosage: 50 MG BID (50 MG, 2 IN 1 D), ORAL 25 MG BID (25 MG, 2 IN 1 D), ORAL
     Route: 048
     Dates: start: 20110529
  5. SOMA (CARISOPRODOL) (CARISOPRODOL) [Concomitant]
  6. FLEXERIL (CYCLOBENZAPRINE) (CYCLOBENZAPRINE) [Concomitant]
  7. AMBIEN [Concomitant]
  8. TRAZODONE (TRAZODONE) (TRAZODONE) [Concomitant]
  9. MAXALT (RIZATRIPTAN BENZOATE) (RIZATRIPTAN BENZOATE) [Concomitant]

REACTIONS (4)
  - CRYING [None]
  - OROPHARYNGEAL PAIN [None]
  - DEPRESSION [None]
  - SUICIDAL IDEATION [None]
